FAERS Safety Report 10228983 (Version 1)
Quarter: 2014Q2

REPORT INFORMATION
  Report Type: Spontaneous
  Country: FR (occurrence: FR)
  Receive Date: 20140610
  Receipt Date: 20140610
  Transmission Date: 20141212
  Serious: Yes (Life-Threatening, Hospitalization)
  Sender: FDA-Public Use
  Company Number: FR-GLAXOSMITHKLINE-B1001795A

PATIENT
  Age: 67 Year
  Sex: Female

DRUGS (1)
  1. RHYTHMOL [Suspect]
     Indication: SUPRAVENTRICULAR TACHYCARDIA
     Dosage: 1800MG PER DAY
     Route: 048

REACTIONS (2)
  - Generalised tonic-clonic seizure [Recovered/Resolved]
  - Cardiac arrest [Recovered/Resolved]
